FAERS Safety Report 11330507 (Version 1)
Quarter: 2015Q3

REPORT INFORMATION
  Report Type: Spontaneous
  Country: US (occurrence: US)
  Receive Date: 20150803
  Receipt Date: 20150803
  Transmission Date: 20151125
  Serious: No
  Sender: FDA-Public Use
  Company Number: US-TAKEDA-2015TUS000784

PATIENT
  Age: 5 Decade
  Sex: Male

DRUGS (3)
  1. UNKNOWN NSAID^S [Concomitant]
     Indication: GOUT
     Dosage: UNK
     Route: 048
  2. COLCRYS [Suspect]
     Active Substance: COLCHICINE
     Indication: GOUT
     Dosage: 4 TABLETS, QD
     Route: 048
     Dates: start: 20150115, end: 20150115
  3. COLCRYS [Suspect]
     Active Substance: COLCHICINE
     Dosage: 8 TABLETS, QD
     Route: 048
     Dates: start: 20150116, end: 20150116

REACTIONS (8)
  - Headache [Recovering/Resolving]
  - Abdominal distension [Recovering/Resolving]
  - Feeding disorder [Recovering/Resolving]
  - Diarrhoea [Recovering/Resolving]
  - Overdose [Recovered/Resolved]
  - Hepatic enzyme increased [Recovering/Resolving]
  - Nausea [Recovering/Resolving]
  - Drug ineffective [Recovering/Resolving]

NARRATIVE: CASE EVENT DATE: 20150115
